FAERS Safety Report 9342600 (Version 3)
Quarter: 2014Q2

REPORT INFORMATION
  Report Type: Spontaneous
  Country: IT (occurrence: IT)
  Receive Date: 20130611
  Receipt Date: 20140602
  Transmission Date: 20141212
  Serious: Yes (Hospitalization)
  Sender: FDA-Public Use
  Company Number: IT-BRISTOL-MYERS SQUIBB COMPANY-18993956

PATIENT
  Age: 87 Year
  Sex: Male

DRUGS (9)
  1. GLUCOPHAGE TABS 500 MG [Suspect]
     Indication: DIABETES MELLITUS
     Route: 048
     Dates: start: 20130418, end: 20130420
  2. COUMADIN TABS 5 MG [Concomitant]
     Indication: ATRIAL FIBRILLATION
     Dosage: 30TABS
     Route: 048
  3. LASIX [Concomitant]
     Dosage: 30TABS
     Route: 048
  4. LUVION [Concomitant]
     Dosage: 40TABS
     Route: 048
  5. PHENYLPROPANOLAMINE HCL [Concomitant]
     Route: 048
  6. PANTORC [Concomitant]
     Route: 048
  7. NITROCOR [Concomitant]
     Route: 062
  8. CARDICOR [Concomitant]
     Dosage: 28TABS
     Route: 048
  9. TRIATEC [Concomitant]
     Dosage: 28TABS
     Route: 048

REACTIONS (5)
  - Lactic acidosis [Recovering/Resolving]
  - Dyspnoea [Recovering/Resolving]
  - Anuria [Recovering/Resolving]
  - Diarrhoea [Recovering/Resolving]
  - Agitation [Recovering/Resolving]
